FAERS Safety Report 9608552 (Version 3)
Quarter: 2013Q4

REPORT INFORMATION
  Report Type: Spontaneous
  Country: FR (occurrence: FR)
  Receive Date: 20131009
  Receipt Date: 20131018
  Transmission Date: 20140711
  Serious: Yes (Hospitalization, Other)
  Sender: FDA-Public Use
  Company Number: FR-PFIZER INC-2013274619

PATIENT
  Age: 53 Year
  Sex: Male

DRUGS (2)
  1. AMLOR [Suspect]
     Dosage: UNK
     Route: 048
     Dates: start: 20130430, end: 20130910
  2. AVLOCARDYL [Suspect]
     Dosage: UNK
     Route: 048
     Dates: start: 20130430

REACTIONS (4)
  - Rheumatoid vasculitis [Recovering/Resolving]
  - Purpura [Recovering/Resolving]
  - Arthralgia [Recovered/Resolved]
  - Gastrointestinal haemorrhage [Unknown]
